FAERS Safety Report 6176739-7 (Version None)
Quarter: 2009Q2

REPORT INFORMATION
  Report Type: 
  Country: None (occurrence: None)
  Receive Date: 20090501
  Receipt Date: 20080410
  Transmission Date: 20091009
  Serious: Yes (Hospitalization)
  Sender: FDA-Public Use
  Company Number: FR-ALEXION-A200800010

PATIENT

DRUGS (2)
  1. SOLIRIS [Suspect]
     Indication: PAROXYSMAL NOCTURNAL HAEMOGLOBINURIA
     Dosage: UNK, UNK
     Route: 042
     Dates: start: 20070309, end: 20071215
  2. ANTI VITAMIN K [Concomitant]
     Indication: THROMBOSIS
     Dates: start: 20010101, end: 20070430

REACTIONS (1)
  - PORTAL VEIN THROMBOSIS [None]
